FAERS Safety Report 7684719-5 (Version None)
Quarter: 2011Q3

REPORT INFORMATION
  Report Type: 
  Country: None (occurrence: None)
  Receive Date: 20110810
  Receipt Date: 20110802
  Transmission Date: 20111222
  Serious: Yes (Hospitalization)
  Sender: FDA-Public Use
  Company Number: JPI-P-016275

PATIENT
  Age: 57 Year
  Sex: Female

DRUGS (5)
  1. XYREM [Suspect]
     Indication: SLEEP APNOEA SYNDROME
     Dosage: 4.5 (2.25, 2 IN 1 D), ORAL (TITRATING DOSE), ORAL 9 (4.5, 2 IN 1 D), ORAL
     Route: 048
     Dates: start: 20110630
  2. XYREM [Suspect]
     Indication: CATAPLEXY
     Dosage: 4.5 (2.25, 2 IN 1 D), ORAL (TITRATING DOSE), ORAL 9 (4.5, 2 IN 1 D), ORAL
     Route: 048
     Dates: start: 20110630
  3. XYREM [Suspect]
     Indication: SLEEP APNOEA SYNDROME
     Dosage: 4.5 (2.25, 2 IN 1 D), ORAL (TITRATING DOSE), ORAL 9 (4.5, 2 IN 1 D), ORAL
     Route: 048
     Dates: start: 20110701
  4. XYREM [Suspect]
     Indication: CATAPLEXY
     Dosage: 4.5 (2.25, 2 IN 1 D), ORAL (TITRATING DOSE), ORAL 9 (4.5, 2 IN 1 D), ORAL
     Route: 048
     Dates: start: 20110701
  5. UNSPECIFIED MEDICATIONS [Suspect]
     Indication: PRODUCT USED FOR UNKNOWN INDICATION

REACTIONS (1)
  - DRUG INTERACTION [None]
